FAERS Safety Report 6822657-8 (Version None)
Quarter: 2010Q3

REPORT INFORMATION
  Report Type: 
  Country: None (occurrence: None)
  Receive Date: 20100708
  Receipt Date: 20100628
  Transmission Date: 20110219
  Serious: Yes (Other)
  Sender: FDA-Public Use
  Company Number: PT-ROCHE-686255

PATIENT
  Sex: Male
  Weight: 105 kg

DRUGS (6)
  1. CELLCEPT [Suspect]
     Indication: FOCAL SEGMENTAL GLOMERULOSCLEROSIS
     Route: 048
     Dates: start: 20091113
  2. CELLCEPT [Suspect]
     Dosage: DOSE REPORTED: 750 MG IN THE MORNING AND 750MG IN THE EVENING
     Route: 048
     Dates: start: 20100611
  3. ZARATOR [Concomitant]
     Dosage: DOSE 1 TABLET IN THE EVENING
     Route: 048
     Dates: start: 20080101, end: 20100115
  4. TEVETEN HCT [Concomitant]
     Indication: BLOOD PRESSURE DECREASED
     Dosage: DRUG STRENGTH REPORTED AS : 600/12.5 MG TABLETS
     Route: 048
  5. ZYLORIC [Concomitant]
     Indication: GOUT
     Route: 048
  6. SIMVASTATIN [Concomitant]
     Dosage: FREQUENCY REPORTED AS: IN THE EVENING PER DAY; DRUG REPORTED:SIMVASTATIN
     Route: 048
     Dates: start: 20100101

REACTIONS (3)
  - ARTHRALGIA [None]
  - MUSCLE RIGIDITY [None]
  - MYALGIA [None]
